FAERS Safety Report 21837943 (Version 1)
Quarter: 2023Q1

REPORT INFORMATION
  Report Type: Spontaneous
  Country: GR (occurrence: GR)
  Receive Date: 20230109
  Receipt Date: 20230109
  Transmission Date: 20230417
  Serious: Yes (Death, Hospitalization, Other)
  Sender: FDA-Public Use
  Company Number: GR-PFIZER INC-PV202300002622

PATIENT
  Age: 74 Year
  Sex: Female

DRUGS (4)
  1. LORLATINIB [Suspect]
     Active Substance: LORLATINIB
     Indication: Lung cancer metastatic
     Dosage: 100 MG, 1X/DAY
  2. LORLATINIB [Suspect]
     Active Substance: LORLATINIB
     Dosage: 75 MG, 1X/DAY
  3. LORLATINIB [Suspect]
     Active Substance: LORLATINIB
     Dosage: 50 MG, 1X/DAY
  4. REMERON [Concomitant]
     Active Substance: MIRTAZAPINE
     Indication: Depression
     Dosage: UNK

REACTIONS (7)
  - Respiratory tract infection [Fatal]
  - Hallucinations, mixed [Unknown]
  - Psychotic disorder [Unknown]
  - Fatigue [Unknown]
  - Asthenia [Unknown]
  - Depression [Unknown]
  - Dysphagia [Unknown]
